FAERS Safety Report 7556217 (Version 6)
Quarter: 2012Q4

REPORT INFORMATION
  Report Type: 
  Country: CA (occurrence: CA)
  Receive Date: 20100827
  Receipt Date: 20120921
  Transmission Date: 20130627
  Serious: Yes (Other)
  Sender: FDA-Public Use
  Company Number: PHHY2010CA54414

PATIENT
  Age: 68 Year
  Sex: Female

DRUGS (4)
  1. ACLASTA [Suspect]
     Indication: OSTEOPOROSIS
     Dosage: 5 mg, UNK
     Route: 042
     Dates: start: 20090908
  2. ACLASTA [Suspect]
     Dosage: UNK UKN, UNK
     Dates: start: 20100901
  3. CARBOCAL D [Concomitant]
     Dosage: UNK UKN, UNK
  4. SERC [Concomitant]
     Dosage: UNK UKN, UNK

REACTIONS (5)
  - Bladder cancer [Recovering/Resolving]
  - Metastases to abdominal cavity [Unknown]
  - Vein disorder [Unknown]
  - Poor venous access [Unknown]
  - Back pain [Unknown]
